FAERS Safety Report 7410900-6 (Version None)
Quarter: 2011Q1

REPORT INFORMATION
  Report Type: 
  Country: None (occurrence: None)
  Receive Date: 20110302
  Receipt Date: 20101022
  Transmission Date: 20110831
  Serious: Yes (Other)
  Sender: FDA-Public Use
  Company Number: 163-21880-10021093

PATIENT
  Age: 73 Year
  Sex: Male

DRUGS (6)
  1. DECADRON [Suspect]
     Indication: PRODUCT USED FOR UNKNOWN INDICATION
     Dosage: 20 MG, WITH REVLIMID ONCE WEEKLY, PO
     Route: 048
     Dates: start: 20100130, end: 20100130
  2. PRAVACHOL [Concomitant]
  3. REVLIMID [Suspect]
     Indication: MULTIPLE MYELOMA
     Dosage: 25 MG, 1 IN 1 D, PO, 10 MG, 1 IN 1 D, PO
     Route: 048
     Dates: start: 20100901
  4. REVLIMID [Suspect]
     Indication: MULTIPLE MYELOMA
     Dosage: 25 MG, 1 IN 1 D, PO, 10 MG, 1 IN 1 D, PO
     Route: 048
     Dates: start: 20100130, end: 20100202
  5. ASPIRIN [Concomitant]
  6. TOPROL-XL [Concomitant]

REACTIONS (5)
  - SWELLING FACE [None]
  - PRURITUS [None]
  - SWELLING [None]
  - DIZZINESS [None]
  - FLUSHING [None]
